FAERS Safety Report 5698793-9 (Version None)
Quarter: 2008Q2

REPORT INFORMATION
  Report Type: 
  Country: None (occurrence: None)
  Receive Date: 20080404
  Receipt Date: 20080401
  Transmission Date: 20081010
  Serious: Yes (Death)
  Sender: FDA-Public Use
  Company Number: VISP-NO-0802S-0116

PATIENT
  Age: 83 Year
  Sex: Female

DRUGS (4)
  1. VISIPAQUE [Suspect]
     Indication: RENAL CELL CARCINOMA
     Dosage: 120 ML, SINGLE DOSE, I.V.
     Route: 042
     Dates: start: 20080218, end: 20080218
  2. VISIPAQUE [Suspect]
  3. CARVEDILOL [Concomitant]
  4. LASIX [Concomitant]

REACTIONS (8)
  - CARDIAC ARREST [None]
  - DEPRESSED LEVEL OF CONSCIOUSNESS [None]
  - HEART RATE DECREASED [None]
  - LOSS OF CONSCIOUSNESS [None]
  - MALAISE [None]
  - RETCHING [None]
  - RIGHT VENTRICULAR FAILURE [None]
  - VENTRICULAR FIBRILLATION [None]
